FAERS Safety Report 8834428 (Version 6)
Quarter: 2013Q1

REPORT INFORMATION
  Report Type: Report from Study
  Country: CA (occurrence: CA)
  Receive Date: 20121010
  Receipt Date: 20130215
  Transmission Date: 20140127
  Serious: Yes (Hospitalization, Other)
  Sender: FDA-Public Use
  Company Number: CA-CELGENEUS-028-21880-12090491

PATIENT
  Age: 82 None
  Sex: Female
  Weight: 83.4 kg

DRUGS (38)
  1. REVLIMID [Suspect]
     Indication: PLASMA CELL MYELOMA
     Dosage: 25 MILLIGRAM
     Route: 048
     Dates: start: 20120705, end: 20120708
  2. REVLIMID [Suspect]
     Dosage: 5 MILLIGRAM
     Route: 048
     Dates: start: 20120711
  3. REVLIMID [Suspect]
     Dosage: 5 MILLIGRAM
     Route: 048
     Dates: start: 20121115
  4. DEXAMETHASONE [Suspect]
     Indication: PLASMA CELL MYELOMA
     Dosage: 10 MILLIGRAM
     Route: 048
     Dates: start: 20120705
  5. DEXAMETHASONE [Suspect]
     Dosage: 40 MILLIGRAM
     Route: 048
     Dates: start: 20120705
  6. SENOKOT [Concomitant]
     Indication: PRODUCT USED FOR UNKNOWN INDICATION
     Route: 065
     Dates: start: 20120802
  7. COLACE [Concomitant]
     Indication: PRODUCT USED FOR UNKNOWN INDICATION
     Route: 065
     Dates: start: 20120802
  8. MULTIVITAMINS [Concomitant]
     Indication: PRODUCT USED FOR UNKNOWN INDICATION
     Route: 065
     Dates: start: 20120803
  9. RANITIDINE [Concomitant]
     Indication: PRODUCT USED FOR UNKNOWN INDICATION
     Route: 065
     Dates: start: 20120719
  10. MUCOSITIS MOUTHWASH [Concomitant]
     Indication: ADVERSE EVENT
     Route: 065
     Dates: start: 20120719
  11. TYLENOL #2 [Concomitant]
     Indication: PRODUCT USED FOR UNKNOWN INDICATION
     Route: 065
     Dates: start: 20120705
  12. TYLENOL [Concomitant]
     Indication: PRODUCT USED FOR UNKNOWN INDICATION
     Route: 065
     Dates: start: 20120301
  13. ATORVASTATIN [Concomitant]
     Indication: PRODUCT USED FOR UNKNOWN INDICATION
     Route: 065
     Dates: start: 20070101, end: 20120726
  14. ATORVASTATIN [Concomitant]
     Route: 065
     Dates: start: 20121231
  15. WARFARIN [Concomitant]
     Indication: PRODUCT USED FOR UNKNOWN INDICATION
     Route: 065
     Dates: start: 20070101
  16. WARFARIN [Concomitant]
     Dosage: 1.25
     Route: 065
     Dates: start: 20120826, end: 20120826
  17. WARFARIN [Concomitant]
     Dosage: 2.5
     Route: 065
     Dates: start: 20120827, end: 20121230
  18. WARFARIN [Concomitant]
     Dosage: 2 MILLIGRAM
     Route: 065
     Dates: start: 20121231
  19. RISEDRONATE SODIUM [Concomitant]
     Indication: PRODUCT USED FOR UNKNOWN INDICATION
     Route: 065
     Dates: start: 20070101
  20. LASIX [Concomitant]
     Indication: ADVERSE EVENT
     Route: 065
     Dates: start: 20070101
  21. LASIX [Concomitant]
     Dosage: 40 MILLIGRAM
     Route: 065
     Dates: start: 20120830, end: 20120906
  22. LASIX [Concomitant]
     Dosage: 60 MILLIGRAM
     Route: 065
     Dates: start: 20120906
  23. METFORMIN [Concomitant]
     Indication: PRODUCT USED FOR UNKNOWN INDICATION
     Route: 065
     Dates: start: 20070101
  24. METFORMIN [Concomitant]
     Route: 065
     Dates: start: 20121226
  25. BISOPROLOL [Concomitant]
     Indication: PRODUCT USED FOR UNKNOWN INDICATION
     Route: 065
     Dates: start: 2007
  26. DILTIAZEM [Concomitant]
     Indication: PRODUCT USED FOR UNKNOWN INDICATION
     Route: 065
     Dates: start: 20070910
  27. ELTROXIN [Concomitant]
     Indication: PRODUCT USED FOR UNKNOWN INDICATION
     Route: 065
     Dates: start: 20070101
  28. DIFLUCAN [Concomitant]
     Indication: ADVERSE EVENT
     Route: 065
     Dates: start: 20120816, end: 20120822
  29. DIFLUCAN [Concomitant]
     Route: 065
     Dates: start: 20120913
  30. FERROUS FUMARATE [Concomitant]
     Indication: ADVERSE EVENT
     Route: 065
     Dates: start: 20120816
  31. CIPRO [Concomitant]
     Indication: PRODUCT USED FOR UNKNOWN INDICATION
     Route: 065
     Dates: start: 20121108, end: 20121110
  32. TAMIFLU [Concomitant]
     Indication: PRODUCT USED FOR UNKNOWN INDICATION
     Route: 065
     Dates: start: 20121226, end: 20121230
  33. ACYCLOVIR [Concomitant]
     Indication: PRODUCT USED FOR UNKNOWN INDICATION
     Route: 065
     Dates: start: 20130103, end: 20130110
  34. JANUMET [Concomitant]
     Indication: PRODUCT USED FOR UNKNOWN INDICATION
     Route: 065
     Dates: start: 20121217, end: 20121225
  35. JANUVIA [Concomitant]
     Indication: PRODUCT USED FOR UNKNOWN INDICATION
     Route: 065
     Dates: start: 20121227
  36. INSULIN GLARGINE [Concomitant]
     Indication: PRODUCT USED FOR UNKNOWN INDICATION
     Route: 065
     Dates: start: 20121226
  37. BENYLIN [Concomitant]
     Indication: PRODUCT USED FOR UNKNOWN INDICATION
     Route: 065
     Dates: start: 20121224, end: 20121225
  38. MOXIFLOXACIN [Concomitant]
     Indication: PNEUMONIA
     Route: 065

REACTIONS (4)
  - Accidental overdose [Recovered/Resolved]
  - Accidental overdose [Recovered/Resolved]
  - Renal impairment [Not Recovered/Not Resolved]
  - Influenza [Recovered/Resolved]
